FAERS Safety Report 4639910-9 (Version None)
Quarter: 2005Q2

REPORT INFORMATION
  Report Type: 
  Country: None (occurrence: None)
  Receive Date: 20050328
  Receipt Date: 20050214
  Transmission Date: 20051028
  Serious: No
  Sender: FDA-Public Use
  Company Number: USA050187916

PATIENT
  Age: 58 Year
  Sex: Male
  Weight: 95 kg

DRUGS (6)
  1. STRATTERA [Suspect]
     Indication: ATTENTION DEFICIT/HYPERACTIVITY DISORDER
     Dosage: 60 MG/ 2 DAY
     Dates: start: 20040419
  2. ADDERALL 20 [Concomitant]
  3. LEXAPRO [Concomitant]
  4. FLOMAX [Concomitant]
  5. CALCIUM GLUCONATE [Concomitant]
  6. MULTI-VITAMINS [Concomitant]

REACTIONS (2)
  - BENIGN PROSTATIC HYPERPLASIA [None]
  - PRESCRIBED OVERDOSE [None]
